FAERS Safety Report 6998128-5 (Version None)
Quarter: 2010Q3

REPORT INFORMATION
  Report Type: 
  Country: None (occurrence: None)
  Receive Date: 20100920
  Receipt Date: 20070724
  Transmission Date: 20110219
  Serious: Yes (Other)
  Sender: FDA-Public Use
  Company Number: US-ASTRAZENECA-2006UW23293

PATIENT
  Age: 362 Month
  Sex: Female
  Weight: 128.4 kg

DRUGS (11)
  1. SEROQUEL [Suspect]
     Indication: ANXIETY
     Route: 048
     Dates: start: 20050101
  2. SEROQUEL [Suspect]
     Indication: DEPRESSION
     Route: 048
     Dates: start: 20050101
  3. SEROQUEL [Suspect]
     Route: 048
     Dates: start: 20050301, end: 20061101
  4. SEROQUEL [Suspect]
     Route: 048
     Dates: start: 20050301, end: 20061101
  5. LEXAPRO [Concomitant]
  6. KLONOPIN [Concomitant]
     Route: 048
     Dates: start: 20050101
  7. METHADONE [Concomitant]
     Dates: start: 19990101
  8. VICODIN [Concomitant]
     Indication: PAIN
     Route: 048
     Dates: start: 19980101
  9. CLONIDINE [Concomitant]
     Indication: DRUG WITHDRAWAL SYNDROME
     Route: 048
     Dates: start: 20020101
  10. IBUPROFEN [Concomitant]
     Dosage: 400MG -800MG
     Route: 048
     Dates: start: 19970101
  11. TYLENOL [Concomitant]
     Dosage: 400MG -650MG
     Route: 048
     Dates: start: 20020101

REACTIONS (2)
  - DRUG EXPOSURE DURING PREGNANCY [None]
  - PANCREATITIS [None]
